FAERS Safety Report 9579972 (Version 1)
Quarter: 2013Q3

REPORT INFORMATION
  Report Type: Spontaneous
  Country: US (occurrence: None)
  Receive Date: 20130930
  Receipt Date: 20130930
  Transmission Date: 20140515
  Serious: Yes (Disabling)
  Sender: FDA-Public Use
  Company Number: None

PATIENT
  Age: 53 Year
  Sex: Female
  Weight: 61.24 kg

DRUGS (1)
  1. CIPRO [Suspect]
     Indication: SINUSITIS
     Route: 048
     Dates: start: 20081205, end: 20081207

REACTIONS (5)
  - Myalgia [None]
  - Muscle spasms [None]
  - Muscle spasms [None]
  - Gait disturbance [None]
  - Asthenia [None]
